FAERS Safety Report 5503995-8 (Version None)
Quarter: 2007Q4

REPORT INFORMATION
  Report Type: 
  Country: None (occurrence: None)
  Receive Date: 20071101
  Receipt Date: 20071023
  Transmission Date: 20080405
  Serious: Yes (Hospitalization)
  Sender: FDA-Public Use
  Company Number: JP-ROCHE-486103

PATIENT
  Age: 48 Year
  Sex: Female

DRUGS (2)
  1. TAMIFLU [Suspect]
     Route: 048
     Dates: start: 20070228, end: 20070301
  2. CALONAL [Suspect]
     Indication: DRUG USE FOR UNKNOWN INDICATION
     Dosage: DOSE FORM REPORTED AS  ORAL FORMULATION.
     Route: 048
     Dates: start: 20070228, end: 20070301

REACTIONS (1)
  - ENTEROCOLITIS HAEMORRHAGIC [None]
